FAERS Safety Report 4445918-9 (Version None)
Quarter: 2004Q3

REPORT INFORMATION
  Report Type: 
  Country: None (occurrence: None)
  Receive Date: 20040908
  Receipt Date: 20040908
  Transmission Date: 20050211
  Serious: Yes (Hospitalization)
  Sender: FDA-Public Use
  Company Number: None

PATIENT
  Age: 61 Year
  Sex: Female

DRUGS (10)
  1. ATENOLOL [Suspect]
     Indication: HYPERTENSION
     Dosage: 50 MG QD
     Dates: start: 20000401
  2. DILTIAZEM [Suspect]
     Indication: HYPERTENSION
     Dosage: 360 MG QD
     Dates: start: 20011101
  3. METHOTREXATE [Concomitant]
  4. FOLIC ACID [Concomitant]
  5. FOSAMAX [Concomitant]
  6. IRBESARTAN [Concomitant]
  7. OMEPRAZOLE [Concomitant]
  8. VIOXX [Concomitant]
  9. LESCOL [Concomitant]
  10. BACLOFEN [Concomitant]

REACTIONS (1)
  - BRADYCARDIA [None]
